FAERS Safety Report 5536377-3 (Version None)
Quarter: 2007Q4

REPORT INFORMATION
  Report Type: 
  Country: None (occurrence: None)
  Receive Date: 20071206
  Receipt Date: 20071126
  Transmission Date: 20080405
  Serious: Yes (Other)
  Sender: FDA-Public Use
  Company Number: PL-AMGEN-US255316

PATIENT
  Age: 32 Year
  Sex: Female
  Weight: 62 kg

DRUGS (3)
  1. ENBREL [Suspect]
     Indication: RHEUMATOID ARTHRITIS
     Route: 058
     Dates: start: 20070701
  2. NIMESULIDE [Concomitant]
     Dates: start: 20050501
  3. METYPRED [Concomitant]
     Indication: RHEUMATOID ARTHRITIS
     Dates: start: 20040201

REACTIONS (1)
  - ABORTION SPONTANEOUS [None]
